FAERS Safety Report 13511510 (Version 1)
Quarter: 2017Q2

REPORT INFORMATION
  Report Type: Spontaneous
  Country: US (occurrence: US)
  Receive Date: 20170503
  Receipt Date: 20170503
  Transmission Date: 20170830
  Serious: Yes (Life-Threatening, Hospitalization)
  Sender: FDA-Public Use
  Company Number: None

PATIENT
  Age: 72 Year
  Sex: Female
  Weight: 69 kg

DRUGS (1)
  1. BEVACIZUMAB [Suspect]
     Active Substance: BEVACIZUMAB
     Indication: CERVIX CARCINOMA
     Route: 042
     Dates: start: 20170105, end: 20170301

REACTIONS (5)
  - Headache [None]
  - Seizure [None]
  - Confusional state [None]
  - Posterior reversible encephalopathy syndrome [None]
  - Vision blurred [None]

NARRATIVE: CASE EVENT DATE: 20170302
